FAERS Safety Report 15241763 (Version 1)
Quarter: 2018Q3

REPORT INFORMATION
  Report Type: Spontaneous
  Country: BE (occurrence: BE)
  Receive Date: 20180805
  Receipt Date: 20180805
  Transmission Date: 20181010
  Serious: Yes (Hospitalization)
  Sender: FDA-Public Use
  Company Number: BE-TEVA-2018-BE-935075

PATIENT
  Sex: Male

DRUGS (4)
  1. IRINOTECAN [Suspect]
     Active Substance: IRINOTECAN
     Route: 042
     Dates: start: 201712, end: 201712
  2. ZALTRAP [Suspect]
     Active Substance: ZIV-AFLIBERCEPT
     Route: 042
     Dates: start: 201712, end: 201712
  3. FOLINIC ACID [Suspect]
     Active Substance: LEUCOVORIN
     Route: 042
     Dates: start: 201712, end: 201712
  4. FLUOROURACIL. [Suspect]
     Active Substance: FLUOROURACIL
     Route: 042
     Dates: start: 201712, end: 201712

REACTIONS (2)
  - Atrial fibrillation [Unknown]
  - Chest pain [Unknown]
